FAERS Safety Report 7953254 (Version 3)
Quarter: 2013Q4

REPORT INFORMATION
  Report Type: Spontaneous
  Country: CO (occurrence: CO)
  Receive Date: 20110520
  Receipt Date: 20131015
  Transmission Date: 20140711
  Serious: Yes (Hospitalization, Other)
  Sender: FDA-Public Use
  Company Number: CO-PFIZER INC-2011106695

PATIENT
  Age: 18 Year
  Sex: Male

DRUGS (4)
  1. EPAMIN [Suspect]
     Indication: PARTIAL SEIZURES
     Dosage: UNK
     Dates: start: 2006
  2. EPAMIN [Suspect]
     Dosage: 100 MG IN THE MORNING, 100 MG IN THE AFTERNOON, 200 MG AT NIGHT
     Route: 048
     Dates: start: 20100605
  3. CLOBAZAM [Concomitant]
     Indication: PARTIAL SEIZURES
     Dosage: 20 MG, 3X/DAY (EVERY 8 HOURS)
     Route: 048
  4. TOPIRAMATE [Concomitant]
     Dosage: 50 MG, 3X/DAY (EVERY 8 HOURS)
     Route: 048

REACTIONS (1)
  - Convulsion [Recovered/Resolved]
